FAERS Safety Report 8265381-X (Version None)
Quarter: 2012Q2

REPORT INFORMATION
  Report Type: 
  Country: None (occurrence: None)
  Receive Date: 20120406
  Receipt Date: 20120323
  Transmission Date: 20120825
  Serious: Yes (Hospitalization)
  Sender: FDA-Public Use
  Company Number: US-WATSON-2012-05175

PATIENT
  Sex: Male
  Weight: 73.923 kg

DRUGS (1)
  1. GELNIQUE [Suspect]
     Indication: HYPERTONIC BLADDER
     Dosage: 1 SACHET DAILY
     Route: 061
     Dates: start: 20120309, end: 20120322

REACTIONS (2)
  - CHEST PAIN [None]
  - DYSPNOEA [None]
